FAERS Safety Report 5711687-5 (Version None)
Quarter: 2008Q2

REPORT INFORMATION
  Report Type: 
  Country: None (occurrence: None)
  Receive Date: 20080421
  Receipt Date: 20080410
  Transmission Date: 20081010
  Serious: Yes (Other)
  Sender: FDA-Public Use
  Company Number: US-PFIZER INC-2008000092

PATIENT
  Sex: Female

DRUGS (1)
  1. CHANTIX [Suspect]
     Dates: start: 20070701, end: 20071101

REACTIONS (5)
  - ARTHRALGIA [None]
  - BLINDNESS [None]
  - MYALGIA [None]
  - VISION BLURRED [None]
  - VISUAL ACUITY REDUCED [None]
